FAERS Safety Report 5010503-7 (Version None)
Quarter: 2006Q2

REPORT INFORMATION
  Report Type: 
  Country: None (occurrence: None)
  Receive Date: 20060525
  Receipt Date: 20051116
  Transmission Date: 20061013
  Serious: No
  Sender: FDA-Public Use
  Company Number: US-GLAXOSMITHKLINE-A0582539A

PATIENT
  Age: 29 Year
  Sex: Female

DRUGS (2)
  1. BACTROBAN [Suspect]
     Indication: DRUG USE FOR UNKNOWN INDICATION
     Dosage: 1APP PER DAY
     Route: 045
     Dates: start: 20051115
  2. SEPTRA [Suspect]
     Indication: DRUG USE FOR UNKNOWN INDICATION
     Route: 065

REACTIONS (9)
  - CHILLS [None]
  - DYSPHAGIA [None]
  - FEELING HOT [None]
  - FLUSHING [None]
  - INSOMNIA [None]
  - PARAESTHESIA [None]
  - PARAESTHESIA ORAL [None]
  - POSTNASAL DRIP [None]
  - STOMACH DISCOMFORT [None]
